FAERS Safety Report 22294665 (Version 1)
Quarter: 2023Q2

REPORT INFORMATION
  Report Type: Spontaneous
  Country: HR (occurrence: HR)
  Receive Date: 20230508
  Receipt Date: 20230508
  Transmission Date: 20230722
  Serious: Yes (Other)
  Sender: FDA-Public Use
  Company Number: None

PATIENT
  Age: 53 Year
  Sex: Female
  Weight: 115 kg

DRUGS (2)
  1. SAXENDA [Suspect]
     Active Substance: LIRAGLUTIDE
     Dosage: DOSE INCREASED OVER 5 WEEKS
     Route: 058
     Dates: end: 202212
  2. SAXENDA [Suspect]
     Active Substance: LIRAGLUTIDE
     Indication: Obesity
     Dosage: 6 MG, QD (6 MG EVERY DAY IN ABDOMEN WITH DOSE INCREASING OVER 5 WEEKS)
     Route: 058
     Dates: start: 202209

REACTIONS (8)
  - Helicobacter gastritis [Recovering/Resolving]
  - Gastritis [Recovered/Resolved with Sequelae]
  - Abdominal pain upper [Recovered/Resolved with Sequelae]
  - Menstruation irregular [Recovering/Resolving]
  - Insomnia [Recovering/Resolving]
  - Dyspepsia [Unknown]
  - Eructation [Unknown]
  - Inappropriate schedule of product administration [Unknown]

NARRATIVE: CASE EVENT DATE: 20220901
